FAERS Safety Report 11451389 (Version 2)
Quarter: 2015Q4

REPORT INFORMATION
  Report Type: Spontaneous
  Country: US (occurrence: US)
  Receive Date: 20150903
  Receipt Date: 20151023
  Transmission Date: 20160304
  Serious: Yes (Other)
  Sender: FDA-Public Use
  Company Number: US-AMGEN-USASP2015089994

PATIENT
  Age: 61 Year
  Sex: Female

DRUGS (1)
  1. ENBREL [Suspect]
     Active Substance: ETANERCEPT
     Indication: PRODUCT USED FOR UNKNOWN INDICATION
     Dosage: UNK
     Route: 065

REACTIONS (9)
  - Inappropriate schedule of drug administration [Unknown]
  - Surgery [Unknown]
  - Pain [Unknown]
  - Musculoskeletal disorder [Unknown]
  - Paraesthesia [Unknown]
  - Abasia [Unknown]
  - Hypoaesthesia [Unknown]
  - Fatigue [Unknown]
  - Device related infection [Unknown]
